FAERS Safety Report 18919765 (Version 1)
Quarter: 2021Q1

REPORT INFORMATION
  Report Type: Report from Study
  Country: None (occurrence: US)
  Receive Date: 20210221
  Receipt Date: 20210221
  Transmission Date: 20210420
  Serious: Yes (Death)
  Sender: FDA-Public Use
  Company Number: US-ABBVIE-21K-163-3781965-00

PATIENT
  Age: 79 Year
  Sex: Female

DRUGS (1)
  1. IMBRUVICA [Suspect]
     Active Substance: IBRUTINIB
     Indication: CHRONIC LYMPHOCYTIC LEUKAEMIA
     Route: 048
     Dates: start: 20190910

REACTIONS (1)
  - Death [Fatal]

NARRATIVE: CASE EVENT DATE: 20210218
